FAERS Safety Report 8309756-9 (Version None)
Quarter: 2012Q2

REPORT INFORMATION
  Report Type: 
  Country: None (occurrence: None)
  Receive Date: 20120425
  Receipt Date: 20120413
  Transmission Date: 20120825
  Serious: Yes (Other)
  Sender: FDA-Public Use
  Company Number: PHHY2012ES034597

PATIENT
  Age: 70 Year
  Sex: Female

DRUGS (2)
  1. DICLOFENAC POTASSIUM [Suspect]
  2. AMOXICILLIN AND CLAVULANATE POTASSIUM [Suspect]

REACTIONS (1)
  - CHOLESTATIC LIVER INJURY [None]
